FAERS Safety Report 5951171-7 (Version None)
Quarter: 2008Q4

REPORT INFORMATION
  Report Type: 
  Country: None (occurrence: None)
  Receive Date: 20081112
  Receipt Date: 20081112
  Transmission Date: 20090506
  Serious: Yes (Other)
  Sender: FDA-Public Use
  Company Number: None

PATIENT
  Age: 37 Year
  Sex: Female
  Weight: 48.9885 kg

DRUGS (1)
  1. FLUOXETINE [Suspect]
     Dosage: 20 MLG 1 A DAY

REACTIONS (4)
  - FEELING ABNORMAL [None]
  - FRUSTRATION [None]
  - IMPAIRED WORK ABILITY [None]
  - VISUAL IMPAIRMENT [None]
